FAERS Safety Report 18144643 (Version 1)
Quarter: 2020Q3

REPORT INFORMATION
  Report Type: Spontaneous
  Country: US (occurrence: US)
  Receive Date: 20200812
  Receipt Date: 20200812
  Transmission Date: 20201103
  Serious: Yes (Hospitalization)
  Sender: FDA-Public Use
  Company Number: None

PATIENT
  Age: 46 Year
  Sex: Female

DRUGS (1)
  1. TEMOZOLOMIDE  CAP 100MG [Suspect]
     Active Substance: TEMOZOLOMIDE
     Route: 048
     Dates: start: 2020

REACTIONS (2)
  - Syncope [None]
  - Therapy interrupted [None]

NARRATIVE: CASE EVENT DATE: 20200719
